FAERS Safety Report 6154458-0 (Version None)
Quarter: 2009Q2

REPORT INFORMATION
  Report Type: 
  Country: None (occurrence: None)
  Receive Date: 20090410
  Receipt Date: 20090410
  Transmission Date: 20091009
  Serious: Yes (Hospitalization)
  Sender: FDA-Public Use
  Company Number: None

PATIENT
  Sex: Female
  Weight: 44 kg

DRUGS (2)
  1. LENALIDOMIDE [Suspect]
     Indication: HODGKIN'S DISEASE
     Dosage: 25 MG Q DAY
     Dates: start: 20080828
  2. ASPIRIN [Concomitant]

REACTIONS (2)
  - ANAEMIA [None]
  - REFUSAL OF TREATMENT BY PATIENT [None]
